FAERS Safety Report 6059845-7 (Version None)
Quarter: 2009Q1

REPORT INFORMATION
  Report Type: 
  Country: None (occurrence: None)
  Receive Date: 20090130
  Receipt Date: 20090119
  Transmission Date: 20090719
  Serious: Yes (Death, Hospitalization, Other)
  Sender: FDA-Public Use
  Company Number: US-JNJFOC-20081205700

PATIENT
  Sex: Male
  Weight: 89.36 kg

DRUGS (1)
  1. REMICADE [Suspect]
     Indication: RHEUMATOID ARTHRITIS
     Route: 042

REACTIONS (5)
  - DEPRESSION [None]
  - FACIAL BONES FRACTURE [None]
  - FALL [None]
  - RED BLOOD CELL COUNT DECREASED [None]
  - URINARY TRACT INFECTION STAPHYLOCOCCAL [None]
